FAERS Safety Report 6740641-X (Version None)
Quarter: 2010Q2

REPORT INFORMATION
  Report Type: 
  Country: None (occurrence: None)
  Receive Date: 20100525
  Receipt Date: 20100519
  Transmission Date: 20101027
  Serious: Yes (Other)
  Sender: FDA-Public Use
  Company Number: JP-WYE-H13941610

PATIENT
  Age: 85 Year
  Sex: Female

DRUGS (8)
  1. ZOSYN [Suspect]
     Indication: PNEUMONIA
     Route: 041
     Dates: start: 20091103, end: 20091208
  2. ZOSYN [Suspect]
     Indication: URINARY TRACT INFECTION
  3. SELENICA-R [Concomitant]
     Route: 048
     Dates: start: 20091123
  4. LASIX [Concomitant]
     Route: 048
     Dates: start: 20091028
  5. FAMOTIDINE [Concomitant]
     Route: 048
     Dates: start: 20091024
  6. LANIRAPID [Concomitant]
     Route: 048
     Dates: start: 20091024
  7. GABAPENTIN [Concomitant]
     Route: 048
     Dates: start: 20091001
  8. ASPIRIN [Concomitant]
     Route: 048
     Dates: start: 20091024

REACTIONS (3)
  - NEUTROPHIL COUNT DECREASED [None]
  - PLATELET COUNT DECREASED [None]
  - WHITE BLOOD CELL COUNT DECREASED [None]
